FAERS Safety Report 10176640 (Version 1)
Quarter: 2014Q2

REPORT INFORMATION
  Report Type: Spontaneous
  Country: JP (occurrence: None)
  Receive Date: 20140514
  Receipt Date: 20140514
  Transmission Date: 20141212
  Serious: Yes (Hospitalization, Other)
  Sender: FDA-Public Use
  Company Number: COR_00046_2014

PATIENT
  Age: 62 Year
  Sex: Female

DRUGS (2)
  1. CARBOPLATIN (CARBOPLATIN) [Suspect]
     Indication: NON-SMALL CELL LUNG CANCER
     Dosage: (DF)
  2. PEMETREXED [Suspect]
     Indication: NON-SMALL CELL LUNG CANCER
     Dosage: (DF)

REACTIONS (10)
  - Cerebral artery occlusion [None]
  - Anaemia [None]
  - Thrombocytopenia [None]
  - Non-small cell lung cancer [None]
  - Cerebrovascular accident [None]
  - Prothrombin time prolonged [None]
  - International normalised ratio increased [None]
  - Fibrin D dimer increased [None]
  - Fibrin degradation products increased [None]
  - Cerebral artery embolism [None]
